FAERS Safety Report 12462424 (Version 1)
Quarter: 2016Q2

REPORT INFORMATION
  Report Type: Spontaneous
  Country: FR (occurrence: FR)
  Receive Date: 20160614
  Receipt Date: 20160614
  Transmission Date: 20160815
  Serious: Yes (Death, Other)
  Sender: FDA-Public Use
  Company Number: FR-ASTRAZENECA-2002CG01629

PATIENT
  Age: 42 Year
  Sex: Female

DRUGS (3)
  1. PREDNISONE. [Suspect]
     Active Substance: PREDNISONE
     Indication: RHEUMATOID ARTHRITIS
     Route: 048
  2. CHLOROQUINE. [Suspect]
     Active Substance: CHLOROQUINE
     Indication: RHEUMATOID ARTHRITIS
     Route: 048
  3. OMEPRAZOLE BAYER [Suspect]
     Active Substance: OMEPRAZOLE
     Indication: GASTRODUODENAL ULCER
     Route: 048

REACTIONS (6)
  - Atrioventricular block complete [Fatal]
  - Cardiomyopathy [Fatal]
  - Coma [Unknown]
  - Conduction disorder [Unknown]
  - Overdose [Fatal]
  - Cardio-respiratory arrest [Unknown]
